FAERS Safety Report 9880544 (Version 1)
Quarter: 2014Q1

REPORT INFORMATION
  Report Type: Spontaneous
  Country: FI (occurrence: None)
  Receive Date: 20140205
  Receipt Date: 20140205
  Transmission Date: 20141002
  Serious: No
  Sender: FDA-Public Use
  Company Number: FI-20140002

PATIENT
  Age: 61 Year
  Sex: Female

DRUGS (4)
  1. DOTAREM [Suspect]
     Indication: NUCLEAR MAGNETIC RESONANCE IMAGING
     Route: 042
     Dates: start: 20140113, end: 20140113
  2. PRIMASPAN (ACETYLSALICYLIC ACID) (ACETYLSALICYLIC ACID) [Concomitant]
  3. ATACAND (CANDESARTAN CILEXTIL)(16 MILLIGRAM)(CANDESARTAN CILEXETIL) [Concomitant]
  4. THYROXIN (LEVOTHYROXINE SODIUM)(LEVOTHYROXINE SODIUM) [Concomitant]

REACTIONS (3)
  - Dyspnoea [None]
  - Cough [None]
  - Urticaria [None]
